FAERS Safety Report 6632666-X (Version None)
Quarter: 2010Q1

REPORT INFORMATION
  Report Type: 
  Country: None (occurrence: None)
  Receive Date: 20100312
  Receipt Date: 20100304
  Transmission Date: 20100710
  Serious: Yes (Hospitalization)
  Sender: FDA-Public Use
  Company Number: JP-ASTRAZENECA-2009SE17094

PATIENT
  Age: 67 Year
  Sex: Male
  Weight: 72 kg

DRUGS (15)
  1. PLACEBO [Suspect]
     Indication: PROSTATE CANCER
     Route: 048
     Dates: start: 20090413, end: 20100305
  2. ZOLADEX [Suspect]
     Indication: PROSTATE CANCER
     Dosage: DOSE UNKNOWN
     Route: 058
     Dates: start: 20031024
  3. CRESTOR [Suspect]
     Indication: HYPERLIPIDAEMIA
     Route: 048
     Dates: start: 20080417
  4. PREDNISOLONE [Suspect]
     Indication: PROSTATE CANCER
     Route: 048
     Dates: start: 20090327
  5. CALBLOCK [Suspect]
     Indication: HYPERTENSION
     Route: 048
     Dates: start: 20061012
  6. LOSARTAN POTASSIUM AND HYDROCHLOROTHIAZIDE [Suspect]
     Indication: HYPERTENSION
     Route: 048
     Dates: start: 20081002
  7. CARVEDILOL [Suspect]
     Indication: HYPERTENSION
     Route: 048
     Dates: start: 20090512
  8. FAMOTIDINE [Suspect]
     Indication: GASTRITIS PROPHYLAXIS
     Route: 048
     Dates: start: 20090706
  9. TAMSULOSIN HCL [Suspect]
     Route: 048
     Dates: start: 20090706
  10. TIZANIDINE HCL [Suspect]
     Indication: INTERVERTEBRAL DISC PROTRUSION
     Route: 048
     Dates: start: 20090115, end: 20090617
  11. TIZANIDINE HCL [Suspect]
     Route: 048
     Dates: start: 20090618
  12. ASPIRIN [Concomitant]
     Dosage: NUMBER OF SEPARATE DOSAGES UNKNOWN
     Route: 048
     Dates: start: 20040227
  13. SODIUM HYALURONATE [Concomitant]
     Dosage: NUMBER OF SEPARATE DOSAGES UNKNOWN
     Route: 014
     Dates: start: 20080515
  14. LIDOCAINE HYDROCHLORIDE [Concomitant]
     Dosage: NUMBER OF SEPARATE DOSAGES UNKNOWN
     Route: 014
     Dates: start: 20080515
  15. CELECOXIB [Concomitant]
     Dosage: NUMBER OF SEPARATE DOSAGES UNKNOWN
     Route: 048
     Dates: start: 20090115, end: 20090617

REACTIONS (3)
  - INTERVERTEBRAL DISC PROTRUSION [None]
  - PULMONARY INFARCTION [None]
  - SPINAL COMPRESSION FRACTURE [None]
